FAERS Safety Report 25882037 (Version 2)
Quarter: 2025Q4

REPORT INFORMATION
  Report Type: Report from Study
  Country: US (occurrence: US)
  Receive Date: 20251006
  Receipt Date: 20251114
  Transmission Date: 20260118
  Serious: No
  Sender: BIOGEN
  Company Number: US-BIOGEN-2025BI01325921

PATIENT
  Age: 25 Year
  Sex: Female

DRUGS (1)
  1. ZURZUVAE [Suspect]
     Active Substance: ZURANOLONE
     Indication: Perinatal depression
     Dosage: DOSAGE TEXT:QPM
     Dates: start: 20250910, end: 20250911

REACTIONS (2)
  - Somnolence [Unknown]
  - Underdose [Recovered/Resolved]

NARRATIVE: CASE EVENT DATE: 20250910
